FAERS Safety Report 19461933 (Version 2)
Quarter: 2021Q3

REPORT INFORMATION
  Report Type: Spontaneous
  Country: IT (occurrence: IT)
  Receive Date: 20210625
  Receipt Date: 20210916
  Transmission Date: 20211014
  Serious: Yes (Hospitalization)
  Sender: FDA-Public Use
  Company Number: IT-TEVA-2021-IT-1924518

PATIENT
  Age: 3 Year
  Sex: Female

DRUGS (1)
  1. FENTANYL. [Suspect]
     Active Substance: FENTANYL
     Indication: WOUND COMPLICATION
     Dosage: FENTANYL TRANSDERMAL THERAPEUTIC PATCH CONTAINING FENTANYL 25 MICROG/H
     Route: 062

REACTIONS (5)
  - Lethargy [Recovering/Resolving]
  - Vomiting [Recovering/Resolving]
  - Accidental exposure to product by child [Unknown]
  - Presyncope [Recovering/Resolving]
  - Accidental overdose [Unknown]
